FAERS Safety Report 6409662-0 (Version None)
Quarter: 2009Q4

REPORT INFORMATION
  Report Type: 
  Country: None (occurrence: None)
  Receive Date: 20091020
  Receipt Date: 20091020
  Transmission Date: 20100525
  Serious: No
  Sender: FDA-Public Use
  Company Number: None

PATIENT
  Age: 66 Year
  Sex: Female
  Weight: 70.3075 kg

DRUGS (1)
  1. AZASITE [Suspect]
     Indication: BLEPHARITIS
     Dosage: 1 DROP 2 TIMES A DAY AFTER 2 DAYS ONE DROP A DAY
     Dates: start: 20090918

REACTIONS (6)
  - APPLICATION SITE IRRITATION [None]
  - APPLICATION SITE PAIN [None]
  - ERYTHEMA OF EYELID [None]
  - EYELID OEDEMA [None]
  - OCULAR HYPERAEMIA [None]
  - VISUAL IMPAIRMENT [None]
